FAERS Safety Report 7561606-4 (Version None)
Quarter: 2011Q2

REPORT INFORMATION
  Report Type: 
  Country: None (occurrence: None)
  Receive Date: 20110621
  Receipt Date: 20110606
  Transmission Date: 20111010
  Serious: Yes (Other)
  Sender: FDA-Public Use
  Company Number: ES-WATSON-2011-08429

PATIENT
  Age: 30 Year
  Sex: Female

DRUGS (2)
  1. FENTANYL [Suspect]
     Indication: EPIDURAL ANAESTHESIA
     Dosage: 50 UG, UNK
     Route: 008
  2. ROPIVACAINE HYDROCHLORIDE [Suspect]
     Indication: EPIDURAL ANAESTHESIA
     Dosage: 9 ML BOLUS OF 0.2%
     Route: 008

REACTIONS (2)
  - ANAESTHETIC COMPLICATION [None]
  - HORNER'S SYNDROME [None]
